FAERS Safety Report 4818984-6 (Version None)
Quarter: 2005Q4

REPORT INFORMATION
  Report Type: 
  Country: None (occurrence: None)
  Receive Date: 20051102
  Receipt Date: 20051102
  Transmission Date: 20060501
  Serious: Yes (Life-Threatening)
  Sender: FDA-Public Use
  Company Number: None

PATIENT
  Age: 61 Year
  Sex: Female
  Weight: 56.7 kg

DRUGS (2)
  1. DAYQUIL COLD/FLU RELIEF, ORIGINAL FLAVOR (DEXTROMETHORPHAN HYDROBROMID [Suspect]
     Dosage: 30 ML, 1 ONLY FOR 1 DAY, ORAL
     Route: 048
     Dates: start: 20051001, end: 20051001
  2. ASPIRIN [Concomitant]

REACTIONS (6)
  - ANAPHYLACTIC REACTION [None]
  - DYSPNOEA [None]
  - ILL-DEFINED DISORDER [None]
  - NAUSEA [None]
  - SPEECH DISORDER [None]
  - THROAT TIGHTNESS [None]
